FAERS Safety Report 7207972-0 (Version None)
Quarter: 2010Q4

REPORT INFORMATION
  Report Type: 
  Country: None (occurrence: None)
  Receive Date: 20101230
  Receipt Date: 20101230
  Transmission Date: 20110411
  Serious: Yes (Life-Threatening, Disabling, Other)
  Sender: FDA-Public Use
  Company Number: None

PATIENT
  Age: 16 Year
  Sex: Female
  Weight: 68.0396 kg

DRUGS (2)
  1. TETRACYCLINE [Suspect]
     Indication: ACNE
     Dosage: 1 CAPSULE 2X'S A DAY
     Dates: start: 20100507, end: 20101015
  2. MINOCYCLINE HCL [Suspect]
     Indication: ACNE
     Dosage: 1 TABLET 2X'S A DAY
     Dates: start: 20100507, end: 20101015

REACTIONS (2)
  - BRAIN OEDEMA [None]
  - VISUAL ACUITY REDUCED [None]
